FAERS Safety Report 4660716-9 (Version None)
Quarter: 2005Q2

REPORT INFORMATION
  Report Type: 
  Country: None (occurrence: None)
  Receive Date: 20050512
  Receipt Date: 20050225
  Transmission Date: 20051028
  Serious: Yes (Death, Hospitalization)
  Sender: FDA-Public Use
  Company Number: US-MERCK-0503USA00103

PATIENT
  Age: 85 Year
  Sex: Female
  Weight: 48 kg

DRUGS (13)
  1. PREMARIN [Concomitant]
     Route: 065
  2. ACCUPRIL [Concomitant]
     Route: 048
  3. VIOXX [Suspect]
     Indication: ARTHRITIS
     Route: 048
     Dates: start: 19990908, end: 20021115
  4. VIOXX [Suspect]
     Route: 048
     Dates: start: 20020829
  5. VIOXX [Suspect]
     Indication: OSTEOARTHRITIS
     Route: 048
     Dates: start: 19990908, end: 20021115
  6. VIOXX [Suspect]
     Route: 048
     Dates: start: 20020829
  7. PROCARDIA XL [Concomitant]
     Route: 048
  8. METHOTREXATE [Concomitant]
     Route: 048
  9. FOLIC ACID [Concomitant]
     Route: 065
  10. OS-CAL [Concomitant]
     Route: 065
  11. DICLOFENAC [Concomitant]
     Route: 065
  12. XANAX [Concomitant]
     Route: 048
  13. REGLAN [Concomitant]
     Route: 065

REACTIONS (9)
  - ARTHRALGIA [None]
  - ATRIAL FIBRILLATION [None]
  - BACK PAIN [None]
  - BLOOD UREA INCREASED [None]
  - CEREBROVASCULAR ACCIDENT [None]
  - DIZZINESS [None]
  - OSTEOPOROSIS [None]
  - PNEUMONIA [None]
  - TACHYCARDIA [None]
